FAERS Safety Report 11311597 (Version 1)
Quarter: 2015Q3

REPORT INFORMATION
  Report Type: Spontaneous
  Country: DK (occurrence: DK)
  Receive Date: 20150727
  Receipt Date: 20150727
  Transmission Date: 20151125
  Serious: Yes (Other)
  Sender: FDA-Public Use
  Company Number: DK-ACTAVIS-2015-15385

PATIENT
  Sex: Male

DRUGS (1)
  1. FINASTERID ACTAVIS [Suspect]
     Active Substance: FINASTERIDE
     Indication: BENIGN PROSTATIC HYPERPLASIA
     Dosage: 5 MG, DAILY
     Route: 065
     Dates: start: 2010, end: 20150716

REACTIONS (2)
  - Breast enlargement [Unknown]
  - Breast pain [Unknown]
